FAERS Safety Report 23742446 (Version 1)
Quarter: 2024Q2

REPORT INFORMATION
  Report Type: Report from Study
  Country: US (occurrence: None)
  Receive Date: 20240415
  Receipt Date: 20240415
  Transmission Date: 20240716
  Serious: Yes (Death)
  Sender: FDA-Public Use
  Company Number: 2021A872886

PATIENT
  Age: 30427 Day
  Sex: Female
  Weight: 59 kg

DRUGS (3)
  1. FASENRA [Suspect]
     Active Substance: BENRALIZUMAB
     Route: 058
     Dates: start: 20200916
  2. NORTHERA [Concomitant]
     Active Substance: DROXIDOPA
  3. NUCALA [Concomitant]
     Active Substance: MEPOLIZUMAB

REACTIONS (1)
  - Death [Fatal]

NARRATIVE: CASE EVENT DATE: 20211124
